FAERS Safety Report 4450153-4 (Version None)
Quarter: 2004Q3

REPORT INFORMATION
  Report Type: 
  Country: None (occurrence: None)
  Receive Date: 20040914
  Receipt Date: 20040902
  Transmission Date: 20050211
  Serious: Yes (Hospitalization)
  Sender: FDA-Public Use
  Company Number: 208872

PATIENT
  Age: 40 Year
  Sex: Male

DRUGS (2)
  1. RITUXAN [Suspect]
     Indication: LYMPHOMA
     Dosage: SEE IMAGE
     Route: 042
     Dates: start: 20031006, end: 20040223
  2. RITUXAN [Suspect]
     Indication: LYMPHOMA
     Dosage: SEE IMAGE
     Route: 042
     Dates: start: 20040101, end: 20040827

REACTIONS (1)
  - PULMONARY EMBOLISM [None]
